FAERS Safety Report 9496774 (Version 1)
Quarter: 2013Q3

REPORT INFORMATION
  Report Type: Spontaneous
  Country: FR (occurrence: FR)
  Receive Date: 20130904
  Receipt Date: 20130904
  Transmission Date: 20140515
  Serious: Yes (Hospitalization, Other)
  Sender: FDA-Public Use
  Company Number: FR-PFIZER INC-2013253298

PATIENT
  Sex: Male

DRUGS (4)
  1. ALDACTONE [Suspect]
     Dosage: UNK
  2. ATARAX [Suspect]
     Dosage: UNK
  3. ROTIGOTINE [Suspect]
     Indication: PARKINSON^S DISEASE
     Dosage: 10 MG, DAILY
     Route: 062
     Dates: end: 2013
  4. VALDOXAN [Suspect]

REACTIONS (1)
  - Coma [Not Recovered/Not Resolved]
